FAERS Safety Report 17816097 (Version 2)
Quarter: 2020Q2

REPORT INFORMATION
  Report Type: Spontaneous
  Country: US (occurrence: US)
  Receive Date: 20200522
  Receipt Date: 20200605
  Transmission Date: 20200714
  Serious: No
  Sender: FDA-Public Use
  Company Number: US-SUNOVION-2020SUN001464

PATIENT
  Age: 35 Year
  Sex: Female

DRUGS (6)
  1. LATUDA [Suspect]
     Active Substance: LURASIDONE HYDROCHLORIDE
     Indication: BIPOLAR DISORDER
     Dosage: 40 MG, QD
     Route: 048
  2. PROTONIX [Concomitant]
     Active Substance: PANTOPRAZOLE SODIUM
     Indication: GASTROOESOPHAGEAL REFLUX DISEASE
     Dosage: UNK, BID
  3. DEPAKOTE ER [Concomitant]
     Active Substance: DIVALPROEX SODIUM
     Indication: MANIA
     Dosage: UNK
  4. VIVITROL [Concomitant]
     Active Substance: NALTREXONE
     Dosage: UNK, Q4WEEKS
  5. LATUDA [Suspect]
     Active Substance: LURASIDONE HYDROCHLORIDE
     Indication: MANIA
     Dosage: 20 MG, QD
     Route: 048
  6. PAXIL [Concomitant]
     Active Substance: PAROXETINE HYDROCHLORIDE
     Dosage: UNK

REACTIONS (4)
  - Off label use [Unknown]
  - Depressed mood [Recovered/Resolved]
  - Mania [Recovered/Resolved]
  - Therapeutic response shortened [Recovered/Resolved]
